FAERS Safety Report 11717782 (Version 2)
Quarter: 2015Q4

REPORT INFORMATION
  Report Type: Spontaneous
  Country: JP (occurrence: JP)
  Receive Date: 20151110
  Receipt Date: 20151113
  Transmission Date: 20160304
  Serious: Yes (Death, Hospitalization, Other)
  Sender: FDA-Public Use
  Company Number: JP-ROCHE-1569709

PATIENT
  Age: 63 Year
  Sex: Female
  Weight: 44 kg

DRUGS (6)
  1. DECADRON [Concomitant]
     Active Substance: DEXAMETHASONE
     Indication: PROPHYLAXIS
     Route: 041
     Dates: start: 20150203, end: 20150226
  2. PACLITAXEL. [Concomitant]
     Active Substance: PACLITAXEL
     Indication: PERITONEAL CARCINOMA METASTATIC
     Route: 041
     Dates: start: 20150203, end: 20150226
  3. AVASTIN [Suspect]
     Active Substance: BEVACIZUMAB
     Indication: PERITONEAL CARCINOMA METASTATIC
     Dosage: DATE OF MOST RECENT DOSE PRIOR TO AE: 26/FEB/2015.?TREATMENT LINE: 2ND?COMPLETED TREATMENT CYCLE NUM
     Route: 041
     Dates: start: 20150205, end: 20150226
  4. ZANTAC [Concomitant]
     Active Substance: RANITIDINE HYDROCHLORIDE
     Indication: PROPHYLAXIS
     Route: 041
     Dates: start: 20150203, end: 20150226
  5. ALOXI [Concomitant]
     Active Substance: PALONOSETRON HYDROCHLORIDE
     Indication: PROPHYLAXIS
     Route: 041
     Dates: start: 20150203, end: 20150226
  6. CARBOPLATIN. [Concomitant]
     Active Substance: CARBOPLATIN
     Indication: PERITONEAL CARCINOMA METASTATIC
     Dosage: COMPLETED TREATMENT CYCLE NUMBER: 2
     Route: 041
     Dates: start: 20150203, end: 20150226

REACTIONS (3)
  - Disease progression [Fatal]
  - Gastrointestinal perforation [Not Recovered/Not Resolved]
  - Abdominal abscess [Unknown]

NARRATIVE: CASE EVENT DATE: 20150325
